FAERS Safety Report 18648094 (Version 1)
Quarter: 2020Q4

REPORT INFORMATION
  Report Type: Spontaneous
  Country: FR (occurrence: FR)
  Receive Date: 20201222
  Receipt Date: 20201222
  Transmission Date: 20210114
  Serious: Yes (Hospitalization, Other)
  Sender: FDA-Public Use
  Company Number: FR-MYLANLABS-2020M1101923

PATIENT
  Age: 76 Year
  Sex: Female

DRUGS (7)
  1. LAMOTRIGINE MYLAN [Suspect]
     Active Substance: LAMOTRIGINE
     Dosage: 2 TABLETS OF LAMOTRIGINE DAILY
  2. LAMOTRIGINE MYLAN [Suspect]
     Active Substance: LAMOTRIGINE
     Dosage: THIRD 15 DAYS 4 TABLETS OF LAMOTRIGINE DAILY
  3. DEPAKINE                           /00228502/ [Concomitant]
     Active Substance: VALPROATE SODIUM
     Indication: HAEMORRHAGIC STROKE
     Dosage: FIRST 15 DAYS, ? TABLET OF DEPAKINE BID
     Dates: start: 20201106
  4. FLECAINE [Concomitant]
     Active Substance: FLECAINIDE
     Dosage: 2 TABLET DAILY
  5. LOPRESOR                           /00376902/ [Concomitant]
     Active Substance: METOPROLOL TARTRATE
     Dosage: 1/4 TABLET DAILY
  6. LAMOTRIGINE MYLAN [Suspect]
     Active Substance: LAMOTRIGINE
     Indication: HAEMORRHAGIC STROKE
     Dosage: 1 TABLET OF LAMOTRIGINE IN THE EVENING
     Dates: start: 20201123
  7. DEPAKINE                           /00228502/ [Concomitant]
     Active Substance: VALPROATE SODIUM
     Dosage: SECOND 15 DAYS, ? TABLET OF DEPAKINE DAILYUNK

REACTIONS (6)
  - Paraesthesia [Recovered/Resolved]
  - Toxic epidermal necrolysis [Unknown]
  - Drug interaction [Unknown]
  - Erythema [Recovered/Resolved]
  - Product dose omission issue [Unknown]
  - Product communication issue [Unknown]

NARRATIVE: CASE EVENT DATE: 20201123
